FAERS Safety Report 16975289 (Version 1)
Quarter: 2019Q4

REPORT INFORMATION
  Report Type: Spontaneous
  Country: CN (occurrence: CN)
  Receive Date: 20191030
  Receipt Date: 20191030
  Transmission Date: 20200122
  Serious: Yes (Other)
  Sender: FDA-Public Use
  Company Number: CN-ROCHE-2446880

PATIENT
  Age: 44 Year
  Sex: Male

DRUGS (5)
  1. TS-1 [Concomitant]
     Active Substance: GIMERACIL\OTERACIL\TEGAFUR
     Indication: GASTRIC CANCER
  2. ENTECAVIR MALEATE [Concomitant]
     Dosage: ORAL ANTI-VIRAL TREATMENT
     Route: 065
     Dates: start: 201801
  3. ENTECAVIR MALEATE [Concomitant]
     Indication: CHRONIC HEPATITIS B
     Dosage: ORAL ANTI-VIRAL TREATMENT
     Route: 065
     Dates: start: 201607, end: 201709
  4. HERCEPTIN [Suspect]
     Active Substance: TRASTUZUMAB
     Indication: GASTRIC CANCER
     Route: 065
  5. OXALIPLATIN. [Concomitant]
     Active Substance: OXALIPLATIN
     Indication: GASTRIC CANCER

REACTIONS (2)
  - Bone marrow failure [Unknown]
  - Neurotoxicity [Unknown]
